FAERS Safety Report 26132087 (Version 1)
Quarter: 2025Q4

REPORT INFORMATION
  Report Type: Spontaneous
  Country: US (occurrence: US)
  Receive Date: 20251208
  Receipt Date: 20251208
  Transmission Date: 20260118
  Serious: Yes (Other)
  Sender: LUNDBECK
  Company Number: US-LUNDBECK-DKLU4022610

PATIENT
  Age: 14 Year
  Sex: Male
  Weight: 50 kg

DRUGS (7)
  1. SABRIL [Suspect]
     Active Substance: VIGABATRIN
     Indication: Infantile spasms
     Dosage: FOR 1 WEEK
  2. SABRIL [Suspect]
     Active Substance: VIGABATRIN
     Indication: Status epilepticus
     Dosage: FOR 1 WEEK
  3. SABRIL [Suspect]
     Active Substance: VIGABATRIN
     Dosage: 1500 MILLIGRAM
  4. SABRIL [Suspect]
     Active Substance: VIGABATRIN
     Dosage: 1250 MILLIGRAM
  5. CLONIDINE HYDROCHLORIDE [Concomitant]
     Active Substance: CLONIDINE HYDROCHLORIDE
     Indication: Product used for unknown indication
     Dosage: 0.1 MILLIGRAM
  6. LAMICTAL [Concomitant]
     Active Substance: LAMOTRIGINE
     Indication: Product used for unknown indication
     Dosage: 100 MILLIGRAM
  7. FYCOMPA [Concomitant]
     Active Substance: PERAMPANEL
     Indication: Product used for unknown indication
     Dosage: 0.5 MG/ML
     Route: 048

REACTIONS (1)
  - Seizure [Unknown]
